FAERS Safety Report 14757725 (Version 1)
Quarter: 2018Q2

REPORT INFORMATION
  Report Type: Spontaneous
  Country: JP (occurrence: JP)
  Receive Date: 20180413
  Receipt Date: 20180413
  Transmission Date: 20180711
  Serious: Yes (Hospitalization)
  Sender: FDA-Public Use
  Company Number: JP-ACTELION-A-CH2017-163040

PATIENT
  Age: 65 Year
  Sex: Female

DRUGS (10)
  1. UPTRAVI [Suspect]
     Active Substance: SELEXIPAG
     Indication: PRODUCT USED FOR UNKNOWN INDICATION
     Dosage: UNK
     Route: 048
  2. ATELEC [Concomitant]
     Active Substance: CILNIDIPINE
  3. CILNIDIPINE [Concomitant]
     Active Substance: CILNIDIPINE
  4. PREDONINE [Concomitant]
     Active Substance: PREDNISOLONE
  5. PREDNISOLONE. [Concomitant]
     Active Substance: PREDNISOLONE
  6. OPSUMIT [Suspect]
     Active Substance: MACITENTAN
     Indication: PULMONARY ARTERIAL HYPERTENSION
     Dosage: 10 MG, QD
     Route: 048
     Dates: start: 20160304
  7. OXYGEN. [Concomitant]
     Active Substance: OXYGEN
  8. UPTRAVI [Suspect]
     Active Substance: SELEXIPAG
     Dosage: UNK
     Route: 048
  9. ADCIRCA [Concomitant]
     Active Substance: TADALAFIL
  10. VENTAVIS [Concomitant]
     Active Substance: ILOPROST

REACTIONS (1)
  - Pain in extremity [Recovering/Resolving]

NARRATIVE: CASE EVENT DATE: 20170602
